FAERS Safety Report 5256233-8 (Version None)
Quarter: 2007Q1

REPORT INFORMATION
  Report Type: 
  Country: None (occurrence: None)
  Receive Date: 20070302
  Receipt Date: 20070302
  Transmission Date: 20070707
  Serious: No
  Sender: FDA-Public Use
  Company Number: None

PATIENT
  Age: 74 Year
  Sex: Male
  Weight: 78.2 kg

DRUGS (2)
  1. ZYVOX [Suspect]
     Indication: PNEUMONIA
     Dosage: 600MG Q12H IV
     Route: 042
     Dates: start: 20070112, end: 20070123
  2. ZOSYN [Suspect]
     Indication: PNEUMONIA
     Dosage: 4.5GM X 4 D, X 3 D 3.375GM Q6H IV
     Route: 042
     Dates: start: 20070112, end: 20070119

REACTIONS (1)
  - PLATELET COUNT DECREASED [None]
